FAERS Safety Report 19840568 (Version 1)
Quarter: 2021Q3

REPORT INFORMATION
  Report Type: Spontaneous
  Country: DE (occurrence: DE)
  Receive Date: 20210916
  Receipt Date: 20210916
  Transmission Date: 20211014
  Serious: Yes (Other)
  Sender: FDA-Public Use
  Company Number: DE-BRISTOL-MYERS SQUIBB COMPANY-BMS-2021-091032

PATIENT
  Age: 57 Year
  Sex: Male

DRUGS (5)
  1. IPILIMUMAB [Suspect]
     Active Substance: IPILIMUMAB
     Indication: MALIGNANT MELANOMA
  2. NIVOLUMAB [Suspect]
     Active Substance: NIVOLUMAB
     Indication: MALIGNANT MELANOMA
  3. RITUXIMAB. [Concomitant]
     Active Substance: RITUXIMAB
     Indication: MALIGNANT MELANOMA
     Dosage: 1000 MILLIGRAM
     Route: 065
  4. CORTICOSTEROIDS [Concomitant]
     Active Substance: CORTICOSTEROID NOS
     Indication: MALIGNANT MELANOMA
     Dosage: 1 MG/KG BODY WEIGHT
     Route: 061
  5. ANTIHISTAMINES [Concomitant]
     Active Substance: ANTIHISTAMINES NOS
     Indication: MALIGNANT MELANOMA
     Dosage: UNK
     Route: 048

REACTIONS (2)
  - Pemphigoid [Unknown]
  - Vitiligo [Unknown]
